FAERS Safety Report 10621620 (Version 1)
Quarter: 2014Q4

REPORT INFORMATION
  Report Type: Spontaneous
  Country: US (occurrence: None)
  Receive Date: 20141201
  Receipt Date: 20141201
  Transmission Date: 20150529
  Serious: No
  Sender: FDA-Public Use
  Company Number: None

PATIENT
  Age: 60 Year
  Sex: Female
  Weight: 74.84 kg

DRUGS (2)
  1. COLESEVELAM HYDROCHLORIDE [Suspect]
     Active Substance: COLESEVELAM HYDROCHLORIDE
     Indication: LIPIDS INCREASED
     Dosage: 3 PILLS
     Route: 048
     Dates: start: 20140408, end: 20140813
  2. COLESEVELAM HYDROCHLORIDE [Suspect]
     Active Substance: COLESEVELAM HYDROCHLORIDE
     Indication: BLOOD CHOLESTEROL INCREASED
     Dosage: 3 PILLS
     Route: 048
     Dates: start: 20140408, end: 20140813

REACTIONS (2)
  - Abdominal pain [None]
  - Hepatic steatosis [None]

NARRATIVE: CASE EVENT DATE: 20140710
